FAERS Safety Report 10895845 (Version 1)
Quarter: 2015Q1

REPORT INFORMATION
  Report Type: Spontaneous
  Country: US (occurrence: US)
  Receive Date: 20150307
  Receipt Date: 20150307
  Transmission Date: 20150721
  Serious: No
  Sender: FDA-Public Use
  Company Number: US-BIOGENIDEC-2015BI021302

PATIENT
  Age: 60 Year
  Sex: Female

DRUGS (4)
  1. TECFIDERA [Suspect]
     Active Substance: DIMETHYL FUMARATE
     Indication: MULTIPLE SCLEROSIS
     Route: 048
  2. CLONIDINE HCL [Concomitant]
     Active Substance: CLONIDINE HYDROCHLORIDE
  3. PHILIPS COLON HEALTH [Concomitant]
  4. MULTIVITAMIN [Concomitant]
     Active Substance: VITAMINS

REACTIONS (2)
  - Cataract [Unknown]
  - Eye disorder [Unknown]
